FAERS Safety Report 6985220-4 (Version None)
Quarter: 2010Q3

REPORT INFORMATION
  Report Type: 
  Country: None (occurrence: None)
  Receive Date: 20100915
  Receipt Date: 20100909
  Transmission Date: 20110219
  Serious: Yes (Death)
  Sender: FDA-Public Use
  Company Number: JP-ROCHE-726383

PATIENT
  Sex: Female

DRUGS (1)
  1. TOCILIZUMAB [Suspect]
     Indication: CASTLEMAN'S DISEASE
     Route: 041

REACTIONS (2)
  - CASTLEMAN'S DISEASE [None]
  - CONDITION AGGRAVATED [None]
